FAERS Safety Report 17327813 (Version 2)
Quarter: 2020Q1

REPORT INFORMATION
  Report Type: Spontaneous
  Country: SA (occurrence: SA)
  Receive Date: 20200127
  Receipt Date: 20200130
  Transmission Date: 20200409
  Serious: Yes (Other)
  Sender: FDA-Public Use
  Company Number: SA-PFIZER INC-2020032875

PATIENT
  Age: 40 Year
  Sex: Female

DRUGS (14)
  1. PYRAZINAMIDE. [Concomitant]
     Active Substance: PYRAZINAMIDE
     Indication: TUBERCULOSIS
  2. MOXIFLOXACIN. [Concomitant]
     Active Substance: MOXIFLOXACIN
     Indication: PERITONEAL TUBERCULOSIS
     Dosage: UNK
  3. MOXIFLOXACIN. [Concomitant]
     Active Substance: MOXIFLOXACIN
     Indication: TUBERCULOSIS
  4. PYRIDOXINE [Concomitant]
     Active Substance: PYRIDOXINE
     Indication: TUBERCULOSIS
     Dosage: UNK
  5. LINEZOLID. [Suspect]
     Active Substance: LINEZOLID
     Indication: TUBERCULOSIS
     Dosage: UNK
  6. AMIKACIN. [Suspect]
     Active Substance: AMIKACIN
     Indication: TUBERCULOSIS
  7. ETHAMBUTOL [Concomitant]
     Active Substance: ETHAMBUTOL HYDROCHLORIDE
     Indication: PERITONEAL TUBERCULOSIS
     Dosage: UNK
  8. PYRAZINAMIDE. [Concomitant]
     Active Substance: PYRAZINAMIDE
     Indication: PERITONEAL TUBERCULOSIS
     Dosage: UNK
  9. CYCLOSERINE. [Concomitant]
     Active Substance: CYCLOSERINE
     Indication: PERITONEAL TUBERCULOSIS
     Dosage: UNK
  10. LINEZOLID. [Suspect]
     Active Substance: LINEZOLID
     Indication: PERITONEAL TUBERCULOSIS
  11. ETHAMBUTOL [Concomitant]
     Active Substance: ETHAMBUTOL HYDROCHLORIDE
     Indication: TUBERCULOSIS
  12. PYRIDOXINE [Concomitant]
     Active Substance: PYRIDOXINE
     Indication: PERITONEAL TUBERCULOSIS
  13. AMIKACIN. [Suspect]
     Active Substance: AMIKACIN
     Indication: PERITONEAL TUBERCULOSIS
     Dosage: UNK
  14. CYCLOSERINE. [Concomitant]
     Active Substance: CYCLOSERINE
     Indication: TUBERCULOSIS

REACTIONS (2)
  - Ototoxicity [Unknown]
  - Bone marrow failure [Unknown]
